FAERS Safety Report 10079070 (Version 2)
Quarter: 2014Q2

REPORT INFORMATION
  Report Type: Spontaneous
  Country: US (occurrence: US)
  Receive Date: 20140415
  Receipt Date: 20140424
  Transmission Date: 20141212
  Serious: Yes (Other)
  Sender: FDA-Public Use
  Company Number: US-PFIZER INC-2014103464

PATIENT
  Age: 52 Year
  Sex: Male

DRUGS (5)
  1. ARGATROBAN [Suspect]
     Indication: ANTICOAGULANT THERAPY
     Dosage: UNK
     Route: 051
  2. DIPYRIDAMOLE [Concomitant]
     Dosage: 75 MG, 3X/DAY
  3. ASPIRIN [Concomitant]
     Dosage: 325 MG
  4. HEPARIN [Concomitant]
  5. WARFARIN [Concomitant]

REACTIONS (2)
  - Dyspnoea [Recovering/Resolving]
  - Thrombosis [Recovering/Resolving]
